FAERS Safety Report 10184377 (Version 1)
Quarter: 2014Q2

REPORT INFORMATION
  Report Type: Report from Study
  Country: AU (occurrence: AU)
  Receive Date: 20140521
  Receipt Date: 20140521
  Transmission Date: 20141212
  Serious: Yes (Other)
  Sender: FDA-Public Use
  Company Number: AU-ROCHE-1403568

PATIENT
  Age: 33 Year
  Sex: Male

DRUGS (5)
  1. BEVACIZUMAB [Suspect]
     Indication: COLORECTAL CANCER METASTATIC
     Route: 065
  2. FOLINIC ACID [Concomitant]
     Route: 065
  3. 5-FLUOROURACIL [Concomitant]
     Route: 065
  4. OXALIPLATIN [Concomitant]
     Route: 065
  5. IRINOTECAN [Concomitant]
     Route: 065

REACTIONS (1)
  - Ischaemia [Unknown]
